FAERS Safety Report 19804257 (Version 1)
Quarter: 2021Q3

REPORT INFORMATION
  Report Type: Spontaneous
  Country: US (occurrence: US)
  Receive Date: 20210908
  Receipt Date: 20210908
  Transmission Date: 20211014
  Serious: No
  Sender: FDA-Public Use
  Company Number: US-FARMAPROD-202104-0590

PATIENT
  Sex: Male

DRUGS (10)
  1. EZETIMIBE. [Concomitant]
     Active Substance: EZETIMIBE
  2. ZIRGAN [Concomitant]
     Active Substance: GANCICLOVIR
  3. COMBIGAN [Concomitant]
     Active Substance: BRIMONIDINE TARTRATE\TIMOLOL MALEATE
     Dosage: 0.2%?0.5%
  4. OXERVATE [Suspect]
     Active Substance: CENEGERMIN-BKBJ
     Indication: NEUROTROPHIC KERATOPATHY
     Route: 047
     Dates: start: 20210314
  5. LUMIGAN [Concomitant]
     Active Substance: BIMATOPROST
  6. SIMVASTATIN. [Concomitant]
     Active Substance: SIMVASTATIN
  7. XARELTO [Concomitant]
     Active Substance: RIVAROXABAN
  8. VALACYCLOVIR [Concomitant]
     Active Substance: VALACYCLOVIR HYDROCHLORIDE
  9. OFLOXACIN. [Concomitant]
     Active Substance: OFLOXACIN
  10. METOPROLOL SUCCINATE. [Concomitant]
     Active Substance: METOPROLOL SUCCINATE

REACTIONS (1)
  - Product administration error [Unknown]
